FAERS Safety Report 21364465 (Version 1)
Quarter: 2022Q3

REPORT INFORMATION
  Report Type: Spontaneous
  Country: US (occurrence: US)
  Receive Date: 20220922
  Receipt Date: 20220922
  Transmission Date: 20221027
  Serious: No
  Sender: FDA-Public Use
  Company Number: US-GLENMARK PHARMACEUTICALS-2022GMK072690

PATIENT

DRUGS (1)
  1. ESTRADIOL [Suspect]
     Active Substance: ESTRADIOL
     Indication: Vulvovaginal dryness
     Dosage: 1 DOSAGE FORM 1 TIME PER DAY FOR 2 WEEKS THEN 2-3 TIMES PER WEEK
     Route: 067
     Dates: start: 202204, end: 202204

REACTIONS (6)
  - Medical device site haemorrhage [Recovered/Resolved]
  - Discomfort [Recovered/Resolved]
  - Vaginal enlargement [Recovered/Resolved]
  - Vaginal haemorrhage [Recovered/Resolved]
  - Abdominal distension [Recovered/Resolved]
  - Device physical property issue [Unknown]

NARRATIVE: CASE EVENT DATE: 20220401
